FAERS Safety Report 6619714-8 (Version None)
Quarter: 2010Q1

REPORT INFORMATION
  Report Type: 
  Country: None (occurrence: None)
  Receive Date: 20100309
  Receipt Date: 20100225
  Transmission Date: 20100710
  Serious: Yes (Hospitalization)
  Sender: FDA-Public Use
  Company Number: PHHY2010DE11151

PATIENT
  Age: 66 Year
  Sex: Female

DRUGS (9)
  1. RASILEZ [Suspect]
     Indication: HYPERTENSION
     Dosage: 225 MG/D
     Dates: start: 20091217
  2. CYNT [Concomitant]
     Dosage: 0.3 MG/D
  3. CARMEN [Concomitant]
     Dosage: 10 MG/D
  4. ASPIRIN [Concomitant]
  5. LEVOTHYROXINE SODIUM [Concomitant]
     Dosage: 5 MG/D
  6. NEBILET [Concomitant]
     Dosage: 5 MG/D
  7. INEGY [Concomitant]
     Dosage: 20 MG/D
  8. PENTAERYTHRITOL TETRANITRATE [Concomitant]
     Dosage: 80 MG/D
  9. TORASEMIDE [Concomitant]
     Dosage: 5 MG/D

REACTIONS (3)
  - BLOOD PRESSURE DECREASED [None]
  - CIRCULATORY COLLAPSE [None]
  - SYNCOPE [None]
